FAERS Safety Report 8335961-1 (Version None)
Quarter: 2012Q2

REPORT INFORMATION
  Report Type: 
  Country: None (occurrence: None)
  Receive Date: 20120501
  Receipt Date: 20120501
  Transmission Date: 20120825
  Serious: Yes (Hospitalization)
  Sender: FDA-Public Use
  Company Number: None

PATIENT
  Age: 78 Year
  Sex: Female
  Weight: 80.2 kg

DRUGS (21)
  1. LUTEIN [Concomitant]
  2. TOPROL-XL [Concomitant]
  3. PRAVASTATIN [Concomitant]
  4. CALCIUM +D [Concomitant]
  5. APRISO [Concomitant]
  6. VITAMIN B-12 [Concomitant]
  7. VIT B6 [Concomitant]
  8. VIT D3 [Concomitant]
  9. FISH OIL [Concomitant]
  10. ELAVIL [Suspect]
     Indication: NEURALGIA
     Dosage: 75MG QHS PO CHRONIC
     Route: 048
  11. ZETIA [Concomitant]
  12. POTASSIUM CHLORIDE [Concomitant]
  13. DIOVAN [Concomitant]
  14. ASPIRIN [Concomitant]
  15. COENZYME Q10 [Concomitant]
  16. NORVASC [Concomitant]
  17. GABAPENTIN [Concomitant]
  18. MULTIVITAMIN [Concomitant]
  19. VESICARE [Suspect]
     Indication: BLADDER SPASM
     Dosage: 10MG/5MG QAM/QPM PO CHRONIC
     Route: 048
  20. FENOFIBRATE [Concomitant]
  21. LISINOPRIL [Concomitant]

REACTIONS (1)
  - MENTAL STATUS CHANGES [None]
